FAERS Safety Report 19129744 (Version 1)
Quarter: 2021Q2

REPORT INFORMATION
  Report Type: Spontaneous
  Country: US (occurrence: US)
  Receive Date: 20210413
  Receipt Date: 20210413
  Transmission Date: 20210717
  Serious: No
  Sender: FDA-Public Use
  Company Number: US-TOPROL-2020000333

PATIENT
  Age: 61 Year
  Sex: Female

DRUGS (4)
  1. METOPROLOL SUCCINATE. [Suspect]
     Active Substance: METOPROLOL SUCCINATE
  2. ALBUTEROL                          /00139501/ [Suspect]
     Active Substance: ALBUTEROL
  3. AMLODIPINE [Suspect]
     Active Substance: AMLODIPINE BESYLATE
  4. LYNPARZA [Suspect]
     Active Substance: OLAPARIB
     Dosage: 150 MG, BID
     Route: 048

REACTIONS (2)
  - Neuropathy peripheral [Unknown]
  - Tremor [Unknown]

NARRATIVE: CASE EVENT DATE: 20200520
